FAERS Safety Report 5099060-7 (Version None)
Quarter: 2006Q3

REPORT INFORMATION
  Report Type: 
  Country: None (occurrence: None)
  Receive Date: 20060731
  Receipt Date: 20060404
  Transmission Date: 20061208
  Serious: Yes (Hospitalization, Other)
  Sender: FDA-Public Use
  Company Number: 221699

PATIENT
  Sex: Female
  Weight: 70 kg

DRUGS (1)
  1. RITUXAN [Suspect]
     Indication: IDIOPATHIC THROMBOCYTOPENIC PURPURA
     Dosage: 689 MG, 1/WEEK, INTRAVENOUS
     Route: 042
     Dates: start: 20060120

REACTIONS (2)
  - POLYARTHRITIS [None]
  - SERUM SICKNESS [None]
